FAERS Safety Report 7121233-X (Version None)
Quarter: 2010Q4

REPORT INFORMATION
  Report Type: 
  Country: None (occurrence: None)
  Receive Date: 20101124
  Receipt Date: 20101115
  Transmission Date: 20110411
  Serious: Yes (Other)
  Sender: FDA-Public Use
  Company Number: US-JNJFOC-20101105637

PATIENT
  Sex: Male
  Weight: 106.28 kg

DRUGS (12)
  1. INVEGA SUSTENNA [Suspect]
     Indication: MAJOR DEPRESSION
     Route: 030
  2. INVEGA SUSTENNA [Suspect]
     Route: 030
  3. INVEGA SUSTENNA [Suspect]
     Indication: POST-TRAUMATIC STRESS DISORDER
     Route: 030
  4. INVEGA SUSTENNA [Suspect]
     Route: 030
  5. TRAZODONE [Concomitant]
  6. UREA CREAM [Concomitant]
     Indication: SKIN IRRITATION
  7. HYDROXYZINE PAMOATE [Concomitant]
     Indication: SLEEP DISORDER
     Dosage: AS NEEDED
  8. HYDROXYZINE PAMOATE [Concomitant]
     Indication: ANXIETY
     Dosage: AS NEEDED
  9. PRAZOSIN HCL [Concomitant]
     Indication: NIGHTMARE
  10. TRAMADOL HCL [Concomitant]
     Indication: PAIN
     Dosage: 1-2 TIMES A DAY AS NEEDED
  11. NICOTINE [Concomitant]
     Indication: WITHDRAWAL SYNDROME
  12. MIRTAZAPINE [Concomitant]
     Indication: AFFECTIVE DISORDER
     Route: 048

REACTIONS (8)
  - CHILLS [None]
  - HYPERHIDROSIS [None]
  - LIP SWELLING [None]
  - OFF LABEL USE [None]
  - PROSTATOMEGALY [None]
  - PYREXIA [None]
  - SWOLLEN TONGUE [None]
  - URTICARIA [None]
